FAERS Safety Report 16994170 (Version 1)
Quarter: 2019Q4

REPORT INFORMATION
  Report Type: Report from Study
  Country: US (occurrence: US)
  Receive Date: 20191105
  Receipt Date: 20191105
  Transmission Date: 20200122
  Serious: Yes (Other)
  Sender: FDA-Public Use
  Company Number: PHHY2015US158476

PATIENT
  Sex: Female

DRUGS (1)
  1. GILENYA [Suspect]
     Active Substance: FINGOLIMOD HYDROCHLORIDE
     Indication: MULTIPLE SCLEROSIS
     Dosage: UNK, QD
     Route: 048

REACTIONS (8)
  - Blood copper increased [Unknown]
  - Urinary tract infection [Unknown]
  - Anaemia [Unknown]
  - Rash [Unknown]
  - Fall [Unknown]
  - Oedema peripheral [Unknown]
  - Ophthalmoplegia [Unknown]
  - Hypothyroidism [Unknown]
